FAERS Safety Report 5795077-5 (Version None)
Quarter: 2008Q2

REPORT INFORMATION
  Report Type: 
  Country: None (occurrence: None)
  Receive Date: 20080630
  Receipt Date: 20080529
  Transmission Date: 20081010
  Serious: Yes (Hospitalization, Other)
  Sender: FDA-Public Use
  Company Number: US-BRISTOL-MYERS SQUIBB COMPANY-14133680

PATIENT
  Age: 53 Year
  Sex: Female
  Weight: 93 kg

DRUGS (2)
  1. ORENCIA [Suspect]
     Indication: RHEUMATOID ARTHRITIS
     Dosage: LAST DOSE GIVEN ON 11-DEC-2007 DRUG INTERRUPTED ON 12NOV07 AND RESTARTED ON APR'08
     Route: 042
     Dates: start: 20061201
  2. METHOTREXATE [Suspect]
     Indication: RHEUMATOID ARTHRITIS
     Route: 058

REACTIONS (1)
  - POSTOPERATIVE WOUND INFECTION [None]
